FAERS Safety Report 17414483 (Version 1)
Quarter: 2020Q1

REPORT INFORMATION
  Report Type: Spontaneous
  Country: US (occurrence: US)
  Receive Date: 20200213
  Receipt Date: 20200213
  Transmission Date: 20200409
  Serious: Yes (Other)
  Sender: FDA-Public Use
  Company Number: US-PFIZER INC-2020061364

PATIENT
  Age: 45 Year
  Sex: Female
  Weight: 61.23 kg

DRUGS (2)
  1. TIKOSYN [Suspect]
     Active Substance: DOFETILIDE
     Indication: EXTRASYSTOLES
     Dosage: 250 MG, 2X/DAY
     Route: 048
     Dates: start: 2015
  2. TIKOSYN [Suspect]
     Active Substance: DOFETILIDE
     Indication: HEART RATE IRREGULAR

REACTIONS (4)
  - Product use issue [Unknown]
  - Malaise [Unknown]
  - Electrocardiogram QT prolonged [Unknown]
  - Off label use [Unknown]

NARRATIVE: CASE EVENT DATE: 2015
